FAERS Safety Report 8287442-1 (Version None)
Quarter: 2012Q2

REPORT INFORMATION
  Report Type: 
  Country: None (occurrence: None)
  Receive Date: 20120411
  Receipt Date: 20120406
  Transmission Date: 20120825
  Serious: Yes (Death)
  Sender: FDA-Public Use
  Company Number: 2012SP014050

PATIENT
  Age: 64 Year
  Sex: Male
  Weight: 64 kg

DRUGS (10)
  1. PORTOLAC [Concomitant]
  2. ACTOS [Concomitant]
  3. TELAVIC (TELAPREVIR) (INVESTIGATIONAL DRUG) [Suspect]
     Indication: HEPATITIS C
     Dosage: 2250 MG;QD;PO
     Route: 048
     Dates: start: 20120306, end: 20120311
  4. NEXIUM [Concomitant]
  5. URSO 250 [Concomitant]
  6. REBETOL [Suspect]
     Indication: HEPATITIS C
     Dosage: 800 MG;QD;PO
     Route: 048
     Dates: start: 20120306, end: 20120311
  7. MAGMITT [Concomitant]
  8. AMARYL [Concomitant]
  9. TALION [Concomitant]
  10. PEG-INTRON [Suspect]
     Indication: HEPATITIS C
     Dosage: 100 MCG;QW;SC
     Route: 058
     Dates: start: 20120306, end: 20120306

REACTIONS (11)
  - DIALYSIS [None]
  - DECREASED APPETITE [None]
  - HAEMODIALYSIS [None]
  - ENCEPHALOPATHY [None]
  - HEPATIC NECROSIS [None]
  - BLOOD GLUCOSE INCREASED [None]
  - BLOOD URIC ACID INCREASED [None]
  - HEPATIC FAILURE [None]
  - LIVER DISORDER [None]
  - COAGULOPATHY [None]
  - ALTERED STATE OF CONSCIOUSNESS [None]
